FAERS Safety Report 7265146-1 (Version None)
Quarter: 2011Q1

REPORT INFORMATION
  Report Type: 
  Country: None (occurrence: None)
  Receive Date: 20110131
  Receipt Date: 20110125
  Transmission Date: 20110831
  Serious: Yes (Death)
  Sender: FDA-Public Use
  Company Number: PHHY2011DE06428

PATIENT
  Sex: Male

DRUGS (1)
  1. RASILEZ [Suspect]
     Dosage: 1 DF, QD
     Dates: start: 20080409, end: 20100222

REACTIONS (1)
  - HEPATIC NEOPLASM MALIGNANT [None]
